FAERS Safety Report 15492605 (Version 1)
Quarter: 2018Q4

REPORT INFORMATION
  Report Type: Report from Study
  Country: US (occurrence: US)
  Receive Date: 20181012
  Receipt Date: 20181012
  Transmission Date: 20190205
  Serious: No
  Sender: FDA-Public Use
  Company Number: US-ALEXION PHARMACEUTICALS INC.-A201813231

PATIENT
  Sex: Female

DRUGS (1)
  1. SOLIRIS [Suspect]
     Active Substance: ECULIZUMAB
     Indication: PRODUCT USED FOR UNKNOWN INDICATION
     Dosage: UNK
     Route: 065

REACTIONS (11)
  - Haematocrit decreased [Unknown]
  - White blood cell disorder [Unknown]
  - Blood creatinine decreased [Unknown]
  - Haemoglobin decreased [Unknown]
  - Red blood cell count decreased [Unknown]
  - Urine protein/creatinine ratio abnormal [Unknown]
  - Blood glucose increased [Unknown]
  - Creatinine urine abnormal [Unknown]
  - Complement factor abnormal [Unknown]
  - Blood albumin decreased [Unknown]
  - Mean cell volume decreased [Unknown]
